FAERS Safety Report 17608534 (Version 4)
Quarter: 2020Q3

REPORT INFORMATION
  Report Type: Spontaneous
  Country: FR (occurrence: FR)
  Receive Date: 20200331
  Receipt Date: 20200702
  Transmission Date: 20201102
  Serious: Yes (Hospitalization, Other)
  Sender: FDA-Public Use
  Company Number: FR-ALEXION PHARMACEUTICALS INC-A202004087

PATIENT
  Age: 18 Year
  Sex: Male
  Weight: 54 kg

DRUGS (3)
  1. SOLIRIS [Suspect]
     Active Substance: ECULIZUMAB
     Dosage: 900 MG, Q2W
     Route: 065
  2. ORACILLINE                         /00001801/ [Concomitant]
     Active Substance: PENICILLIN V
     Indication: ANTIBIOTIC PROPHYLAXIS
     Dosage: 1 MU, BID
     Route: 065
     Dates: start: 20191202
  3. SOLIRIS [Suspect]
     Active Substance: ECULIZUMAB
     Indication: PAROXYSMAL NOCTURNAL HAEMOGLOBINURIA
     Dosage: 1800 MG, QMONTH
     Route: 042
     Dates: start: 20200109

REACTIONS (6)
  - Purpura fulminans [Recovered/Resolved]
  - Vaccination failure [Recovered/Resolved]
  - Cardiogenic shock [Recovered/Resolved]
  - Meningococcal infection [Unknown]
  - Meningococcal bacteraemia [Recovered/Resolved]
  - Drug ineffective [Unknown]

NARRATIVE: CASE EVENT DATE: 20200302
